FAERS Safety Report 8500565-4 (Version None)
Quarter: 2012Q3

REPORT INFORMATION
  Report Type: 
  Country: None (occurrence: None)
  Receive Date: 20120710
  Receipt Date: 20120629
  Transmission Date: 20120928
  Serious: Yes (Death, Hospitalization)
  Sender: FDA-Public Use
  Company Number: PH-BAXTER-2012BAX009501

PATIENT
  Sex: Female

DRUGS (2)
  1. DIANEAL PD-2 W/ DEXTROSE 1.5% [Suspect]
     Route: 033
  2. DIANEAL PD-2 W/ DEXTROSE 4.25% [Suspect]
     Route: 033

REACTIONS (2)
  - SEPTIC SHOCK [None]
  - DYSPNOEA [None]
